FAERS Safety Report 6663749-6 (Version None)
Quarter: 2010Q2

REPORT INFORMATION
  Report Type: 
  Country: None (occurrence: None)
  Receive Date: 20100401
  Receipt Date: 20091117
  Transmission Date: 20101027
  Serious: No
  Sender: FDA-Public Use
  Company Number: US-ABBOTT-09P-163-0609928-00

PATIENT
  Sex: Female
  Weight: 63.56 kg

DRUGS (1)
  1. TARKA [Suspect]
     Indication: HYPERTENSION
     Dosage: 4MG / 240MG  1 PER DAY
     Dates: start: 20050101, end: 20090701

REACTIONS (2)
  - HEADACHE [None]
  - PALPITATIONS [None]
